FAERS Safety Report 19820689 (Version 1)
Quarter: 2021Q3

REPORT INFORMATION
  Report Type: Spontaneous
  Country: US (occurrence: US)
  Receive Date: 20210910
  Receipt Date: 20210910
  Transmission Date: 20211014
  Serious: No
  Sender: FDA-Public Use
  Company Number: None

PATIENT
  Age: 43 Year
  Sex: Male

DRUGS (1)
  1. TREMFYA [Suspect]
     Active Substance: GUSELKUMAB
     Indication: PSORIASIS
     Dosage: ?          OTHER FREQUENCY:EVERY 8 WEEKS;OTHER ROUTE:UNDER THE SKIN?
     Dates: start: 202105

REACTIONS (3)
  - Product dose omission issue [None]
  - Injection site haemorrhage [None]
  - Device malfunction [None]

NARRATIVE: CASE EVENT DATE: 20210909
